FAERS Safety Report 10883099 (Version 1)
Quarter: 2015Q1

REPORT INFORMATION
  Report Type: Spontaneous
  Country: US (occurrence: None)
  Receive Date: 20150226
  Receipt Date: 20150226
  Transmission Date: 20150721
  Serious: Yes (Disabling)
  Sender: FDA-Public Use
  Company Number: None

PATIENT
  Age: 33 Year
  Sex: Male
  Weight: 106.6 kg

DRUGS (5)
  1. BUSPIRONE [Concomitant]
     Active Substance: BUSPIRONE HYDROCHLORIDE
  2. OXCARPENZEPRINE [Concomitant]
  3. DIAZAPAM 10 MG GEL [Concomitant]
     Active Substance: DIAZEPAM
  4. NEUROTIN [Concomitant]
  5. CIPRO [Suspect]
     Active Substance: CIPROFLOXACIN HYDROCHLORIDE
     Indication: ANTIBIOTIC PROPHYLAXIS
     Dosage: 1 PILL
     Route: 048
     Dates: start: 20100816

REACTIONS (5)
  - Neuropathy peripheral [None]
  - Toxicity to various agents [None]
  - Stiff person syndrome [None]
  - Rhabdomyolysis [None]
  - Muscle atrophy [None]

NARRATIVE: CASE EVENT DATE: 20100816
